FAERS Safety Report 19406540 (Version 1)
Quarter: 2021Q2

REPORT INFORMATION
  Report Type: Spontaneous
  Country: DE (occurrence: DE)
  Receive Date: 20210612
  Receipt Date: 20210612
  Transmission Date: 20210717
  Serious: Yes (Other)
  Sender: FDA-Public Use
  Company Number: DE-MACLEODS PHARMACEUTICALS US LTD-MAC2021031416

PATIENT

DRUGS (9)
  1. METHOTREXATE. [Concomitant]
     Active Substance: METHOTREXATE
     Indication: PRODUCT USED FOR UNKNOWN INDICATION
     Dosage: 15 MILLIGRAM/SQ. METER, QD, ON DAY 1
     Route: 065
  2. PIPERACILLIN/TAZOBACTAM [Concomitant]
     Active Substance: PIPERACILLIN SODIUM\TAZOBACTAM SODIUM
     Indication: PYREXIA
     Dosage: UNK, FROM DAY +3 TO DAY +17
     Route: 065
  3. CYCLOSPORIN A [Concomitant]
     Active Substance: CYCLOSPORINE
     Indication: PRODUCT USED FOR UNKNOWN INDICATION
     Dosage: UNK, STARTED ON DAY ?1.
     Route: 065
  4. BUSULFAN. [Concomitant]
     Active Substance: BUSULFAN
     Indication: BONE MARROW CONDITIONING REGIMEN
     Dosage: 4 MILLIGRAM/KILOGRAM, QID (4 X 4 MG/KG BODY WEIGHT)
     Route: 048
  5. ACYCLOVIR. [Suspect]
     Active Substance: ACYCLOVIR
     Indication: PROPHYLAXIS
     Dosage: 10 MILLIGRAM/KILOGRAM, TID, FROM DAY ?8 BEFORE TRANSPLANTATION
     Route: 042
  6. CYCLOPHOSPHAMIDE. [Concomitant]
     Active Substance: CYCLOPHOSPHAMIDE
     Indication: BONE MARROW CONDITIONING REGIMEN
     Dosage: 50 MILLIGRAM/KILOGRAM, QID (4 X 50 MG/KG BODY WEIGHT)
     Route: 042
  7. ACYCLOVIR. [Suspect]
     Active Substance: ACYCLOVIR
     Dosage: 10 MILLIGRAM/KILOGRAM, BID, DOSE WAS REDUCED ON DAY +18 DUE TO RENAL IMPAIRMENT TILL DAY +22
     Route: 042
  8. FLUCONAZOLE. [Concomitant]
     Active Substance: FLUCONAZOLE
     Indication: CANDIDA INFECTION
     Dosage: 400 MILLIGRAM, QD, FROM DAY +18 TO +32
     Route: 065
  9. METHOTREXATE. [Concomitant]
     Active Substance: METHOTREXATE
     Dosage: 10 MILLIGRAM/SQ. METER, QD, ON DAY 3 AND 6
     Route: 065

REACTIONS (3)
  - Blood brain barrier defect [Unknown]
  - Epilepsy [Recovered/Resolved]
  - Neurotoxicity [Unknown]
